FAERS Safety Report 14313306 (Version 2)
Quarter: 2018Q1

REPORT INFORMATION
  Report Type: Report from Study
  Country: FR (occurrence: FR)
  Receive Date: 20171221
  Receipt Date: 20180215
  Transmission Date: 20180509
  Serious: Yes (Other)
  Sender: FDA-Public Use
  Company Number: FR-AUROBINDO-AUR-APL-2017-45754

PATIENT
  Age: 67 Year
  Sex: Female

DRUGS (2)
  1. AZITHROMYCIN ANHYDROUS. [Suspect]
     Active Substance: AZITHROMYCIN ANHYDROUS
     Indication: OBLITERATIVE BRONCHIOLITIS
     Dosage: 250 MG, DAILY,3 TIMES A WEEK FOR 1 YEAR AND 4 MONTHS(
     Route: 048
     Dates: start: 20150806, end: 20161126
  2. AZITHROMYCIN ANHYDROUS. [Suspect]
     Active Substance: AZITHROMYCIN ANHYDROUS
     Indication: PROPHYLAXIS

REACTIONS (1)
  - Leukaemia recurrent [Recovered/Resolved]

NARRATIVE: CASE EVENT DATE: 20161125
